FAERS Safety Report 8725494 (Version 2)
Quarter: 2012Q4

REPORT INFORMATION
  Report Type: Report from Study
  Country: JP (occurrence: JP)
  Receive Date: 20120815
  Receipt Date: 20120906
  Transmission Date: 20130627
  Serious: Yes (Hospitalization)
  Sender: FDA-Public Use
  Company Number: JP-ELI_LILLY_AND_COMPANY-JP201208002054

PATIENT
  Age: 62 Year
  Sex: Female

DRUGS (13)
  1. EXENATIDE LONG ACTING RELEASE 2MG [Suspect]
     Indication: TYPE 2 DIABETES MELLITUS
     Dosage: UNK, weekly (1/W)
     Route: 048
     Dates: start: 20091020, end: 20101028
  2. METFORMIN HYDROCHLORIDE [Concomitant]
     Dosage: 1500 mg, UNK
     Route: 048
     Dates: start: 20110107
  3. GLACTIV [Concomitant]
     Dosage: 100 mg, UNK
     Route: 048
     Dates: start: 20110107, end: 20110203
  4. GLACTIV [Concomitant]
     Dosage: 100 mg, UNK
     Route: 048
     Dates: start: 20110304, end: 20120105
  5. EQUA [Concomitant]
     Dosage: 50 mg, bid
     Route: 048
     Dates: start: 20110204, end: 20110303
  6. EQUA [Concomitant]
     Dosage: 50 mg, bid
     Route: 048
     Dates: start: 20120106
  7. PLETAAL [Concomitant]
     Dosage: 200 mg, UNK
     Route: 048
  8. LIPITOR [Concomitant]
     Dosage: 5 mg, UNK
     Route: 048
  9. MAINTATE [Concomitant]
     Dosage: 2.5 mg, UNK
     Route: 048
  10. METFORMIN                          /00082702/ [Concomitant]
     Dosage: 750 mg, UNK
     Route: 048
     Dates: end: 20110106
  11. ADONA                              /00056903/ [Concomitant]
     Dosage: 150 mg, UNK
     Route: 048
     Dates: start: 20100210, end: 20110203
  12. ANPLAG [Concomitant]
     Dosage: 100 mg, UNK
     Route: 048
     Dates: start: 20110204
  13. SUNRYTHM [Concomitant]
     Dosage: 150 mg, UNK
     Route: 048
     Dates: start: 20100426, end: 20100526

REACTIONS (1)
  - Bladder cancer [Recovered/Resolved]
